FAERS Safety Report 5665120-2 (Version None)
Quarter: 2008Q1

REPORT INFORMATION
  Report Type: 
  Country: None (occurrence: None)
  Receive Date: 20080314
  Receipt Date: 20080304
  Transmission Date: 20080703
  Serious: Yes (Other)
  Sender: FDA-Public Use
  Company Number: US-PFIZER INC-2008021733

PATIENT
  Sex: Male
  Weight: 104.3 kg

DRUGS (4)
  1. LYRICA [Suspect]
     Indication: PHANTOM PAIN
  2. CHANTIX [Suspect]
     Indication: SMOKING CESSATION THERAPY
     Dates: start: 20071225, end: 20071229
  3. NEURONTIN [Concomitant]
  4. XANAX [Concomitant]

REACTIONS (4)
  - COMA [None]
  - NEURALGIA [None]
  - SUICIDAL IDEATION [None]
  - SUICIDE ATTEMPT [None]
